FAERS Safety Report 5586783-6 (Version None)
Quarter: 2008Q1

REPORT INFORMATION
  Report Type: 
  Country: None (occurrence: None)
  Receive Date: 20080110
  Receipt Date: 20071228
  Transmission Date: 20080703
  Serious: Yes (Hospitalization)
  Sender: FDA-Public Use
  Company Number: FR-AVENTIS-200714180FR

PATIENT
  Age: 92 Year
  Sex: Female

DRUGS (3)
  1. OFLOCET                            /00731801/ [Suspect]
     Route: 048
     Dates: start: 20070424
  2. FLAGYL [Suspect]
     Route: 048
     Dates: start: 20070424
  3. ANTITHROMBOTIC AGENTS [Concomitant]
     Route: 048

REACTIONS (3)
  - AGITATION [None]
  - CONFUSIONAL STATE [None]
  - INTERNATIONAL NORMALISED RATIO INCREASED [None]
